FAERS Safety Report 20140886 (Version 1)
Quarter: 2021Q4

REPORT INFORMATION
  Report Type: Spontaneous
  Country: FR (occurrence: FR)
  Receive Date: 20211202
  Receipt Date: 20211202
  Transmission Date: 20220303
  Serious: Yes (Other)
  Sender: FDA-Public Use
  Company Number: None

PATIENT
  Age: 47 Year
  Sex: Female
  Weight: 76.6 kg

DRUGS (5)
  1. FLUCONAZOLE [Suspect]
     Active Substance: FLUCONAZOLE
     Indication: Oesophageal candidiasis
     Dosage: 200 MILLIGRAM, QD
     Route: 041
     Dates: start: 20210520, end: 20210606
  2. VANCOMYCIN [Suspect]
     Active Substance: VANCOMYCIN
     Indication: Staphylococcal infection
     Dosage: 4 GRAM, QD, 2GX2/JOUR
     Route: 041
     Dates: start: 20210518, end: 20210521
  3. FILGRASTIM [Suspect]
     Active Substance: FILGRASTIM
     Indication: Acute myeloid leukaemia
     Dosage: 48 MEGA-INTERNATIONAL UNIT, 48MUI LE 11 ET LE 18 MAI 2021
     Route: 041
     Dates: start: 20210511, end: 20210519
  4. CYTARABINE [Suspect]
     Active Substance: CYTARABINE
     Indication: Acute myeloid leukaemia
     Dosage: 10.8 GRAM, QD, 5.4G X2/J LE 04MAI 2021, LE 06 MAI 2021, LE 08 MAI 2021
     Route: 041
     Dates: start: 20210504, end: 20210508
  5. PIPERACILLIN SODIUM [Suspect]
     Active Substance: PIPERACILLIN SODIUM
     Indication: Escherichia infection
     Dosage: 12 GRAM, QD
     Route: 041
     Dates: start: 20210517, end: 20210606

REACTIONS (1)
  - Renal failure [Recovering/Resolving]

NARRATIVE: CASE EVENT DATE: 20210522
